FAERS Safety Report 12507704 (Version 1)
Quarter: 2016Q2

REPORT INFORMATION
  Report Type: Spontaneous
  Country: GB (occurrence: GB)
  Receive Date: 20160629
  Receipt Date: 20160629
  Transmission Date: 20160815
  Serious: Yes (Other)
  Sender: FDA-Public Use
  Company Number: GB-MYLANLABS-2016M1026225

PATIENT

DRUGS (2)
  1. ROPINIROLE. [Suspect]
     Active Substance: ROPINIROLE
     Dosage: UNK
     Dates: start: 20160223
  2. PRAMIPEXOLE. [Concomitant]
     Active Substance: PRAMIPEXOLE
     Dosage: 1 DF, QD (2-3 HOURS BEFORE BEDTIME.)
     Dates: start: 20160610

REACTIONS (2)
  - Alopecia [Unknown]
  - Hypotrichosis [Unknown]

NARRATIVE: CASE EVENT DATE: 20160610
